FAERS Safety Report 20174949 (Version 1)
Quarter: 2021Q4

REPORT INFORMATION
  Report Type: Spontaneous
  Country: DE (occurrence: DE)
  Receive Date: 20211213
  Receipt Date: 20211213
  Transmission Date: 20220303
  Serious: Yes (Hospitalization, Other)
  Sender: FDA-Public Use
  Company Number: None

PATIENT
  Age: 62 Year
  Sex: Male

DRUGS (7)
  1. ESOMEPRAZOLE [Suspect]
     Active Substance: ESOMEPRAZOLE
     Indication: Product used for unknown indication
     Route: 048
     Dates: start: 20201231, end: 20210131
  2. CLOZAPINE [Suspect]
     Active Substance: CLOZAPINE
     Indication: Product used for unknown indication
     Dosage: 275-300 MG PO
     Route: 048
     Dates: start: 20210101, end: 20210103
  3. IBUPROFEN [Suspect]
     Active Substance: IBUPROFEN
     Indication: Product used for unknown indication
     Route: 048
     Dates: start: 20201231, end: 20210201
  4. CERTOPARIN SODIUM [Concomitant]
     Active Substance: CERTOPARIN SODIUM
     Dosage: UNTIL FURTHER NOTICE
     Dates: start: 20201215
  5. BUPROPION HYDROCHLORIDE [Concomitant]
     Active Substance: BUPROPION HYDROCHLORIDE
     Dosage: UNTIL FURTHER NOTICE
     Route: 048
     Dates: start: 20201221
  6. OXYCODONE [Concomitant]
     Active Substance: OXYCODONE
     Dosage: FROM 12.01.2021 15 MG UNTIL FURTHER NOTICE
     Route: 048
     Dates: start: 20201231, end: 20210111
  7. LORAZEPAM [Concomitant]
     Active Substance: LORAZEPAM
     Dosage: FOR A LONG TIME
     Route: 048
     Dates: end: 20210102

REACTIONS (2)
  - Neutropenia [Recovered/Resolved]
  - Leukopenia [Recovered/Resolved]

NARRATIVE: CASE EVENT DATE: 20210105
